FAERS Safety Report 8028713-3 (Version None)
Quarter: 2012Q1

REPORT INFORMATION
  Report Type: 
  Country: None (occurrence: None)
  Receive Date: 20120104
  Receipt Date: 20111221
  Transmission Date: 20120608
  Serious: Yes (Life-Threatening, Hospitalization, Other)
  Sender: FDA-Public Use
  Company Number: 2011MA017927

PATIENT
  Sex: Male
  Weight: 107.7747 kg

DRUGS (18)
  1. ASPIRIN [Concomitant]
  2. FOSINOPRIL SODIUM [Concomitant]
  3. BENAZEPRIL HYDROCHLORIDE [Concomitant]
  4. LASIX [Concomitant]
  5. ALLOPURINOL [Concomitant]
  6. IBUPROFEN [Concomitant]
  7. FEBUXOSTAT [Concomitant]
  8. KLOR-CON [Concomitant]
  9. SIMVASTATIN [Concomitant]
  10. ZETIA [Concomitant]
  11. DIGOXIN [Suspect]
     Indication: CARDIAC FAILURE CONGESTIVE
     Dosage: 0.25 MG;QD;PO
     Route: 048
     Dates: start: 20000701, end: 20100916
  12. CARVEDILOL [Concomitant]
  13. COLCHICINE [Concomitant]
  14. EZETIMIBE [Concomitant]
  15. NITROGLYCERIN [Concomitant]
  16. OMEPRAZOLE [Concomitant]
  17. LOVASTATIN [Concomitant]
  18. RANITIDINE [Concomitant]

REACTIONS (38)
  - GOUT [None]
  - OBESITY [None]
  - AORTIC VALVE INCOMPETENCE [None]
  - LIGAMENT DISORDER [None]
  - CARDIOMYOPATHY [None]
  - FATIGUE [None]
  - PALPITATIONS [None]
  - SYNOVITIS [None]
  - LEFT VENTRICULAR FAILURE [None]
  - EXOSTOSIS [None]
  - HUMERUS FRACTURE [None]
  - OSTEOSCLEROSIS [None]
  - PULMONARY VASCULAR DISORDER [None]
  - CARDIAC FAILURE CONGESTIVE [None]
  - HEREDITARY HAEMORRHAGIC TELANGIECTASIA [None]
  - ARTHRITIS [None]
  - DIASTOLIC DYSFUNCTION [None]
  - ATRIAL FIBRILLATION [None]
  - BUNDLE BRANCH BLOCK LEFT [None]
  - NODULE [None]
  - VENTRICULAR EXTRASYSTOLES [None]
  - PAPULE [None]
  - MYOCARDIAL ISCHAEMIA [None]
  - ORTHOPNOEA [None]
  - HYPERTENSION [None]
  - CREPITATIONS [None]
  - ABDOMINAL HERNIA [None]
  - CHONDROCALCINOSIS [None]
  - PUPILLARY REFLEX IMPAIRED [None]
  - MYOCARDIAL INFARCTION [None]
  - ARTHRALGIA [None]
  - OSTEOARTHRITIS [None]
  - GASTROOESOPHAGEAL REFLUX DISEASE [None]
  - DIZZINESS [None]
  - TRICUSPID VALVE INCOMPETENCE [None]
  - JOINT EFFUSION [None]
  - SLEEP APNOEA SYNDROME [None]
  - ANGINA UNSTABLE [None]
